FAERS Safety Report 19702351 (Version 2)
Quarter: 2021Q3

REPORT INFORMATION
  Report Type: Spontaneous
  Country: DE (occurrence: DE)
  Receive Date: 20210815
  Receipt Date: 20210830
  Transmission Date: 20211014
  Serious: Yes (Other)
  Sender: FDA-Public Use
  Company Number: DE-ASCEND THERAPEUTICS US, LLC-2115043

PATIENT
  Age: 7 Year
  Sex: Male

DRUGS (4)
  1. PROGESTOGEL(PROGESTOGEL)(PROGESTERONE) [Suspect]
     Active Substance: PROGESTERONE
     Route: 065
     Dates: start: 2017, end: 2021
  2. GYNOKADIN DOSIERGEL (ESTRADIOL HEMIHYDRATE) [Suspect]
     Active Substance: ESTRADIOL HEMIHYDRATE
     Route: 065
     Dates: start: 201404, end: 202107
  3. ESTROGEL [Suspect]
     Active Substance: ESTRADIOL
  4. ESTROGEL [Suspect]
     Active Substance: ESTRADIOL
     Indication: PRODUCT USED FOR UNKNOWN INDICATION
     Route: 065
     Dates: start: 201404, end: 202107

REACTIONS (7)
  - Gynaecomastia [Unknown]
  - Precocious puberty [Unknown]
  - Blood follicle stimulating hormone decreased [Recovered/Resolved]
  - Gigantism [Unknown]
  - Pseudoprecocious puberty [Unknown]
  - Oestradiol increased [Recovered/Resolved]
  - Accidental exposure to product by child [None]

NARRATIVE: CASE EVENT DATE: 2014
